FAERS Safety Report 7718447-4 (Version None)
Quarter: 2011Q3

REPORT INFORMATION
  Report Type: 
  Country: None (occurrence: None)
  Receive Date: 20110830
  Receipt Date: 20110825
  Transmission Date: 20111222
  Serious: Yes (Other)
  Sender: FDA-Public Use
  Company Number: US-PFIZER INC-2011124758

PATIENT
  Sex: Female

DRUGS (5)
  1. ADVAIR DISKUS 100/50 [Suspect]
  2. PERCOCET [Suspect]
  3. NEURONTIN [Suspect]
     Indication: FIBROMYALGIA
     Dosage: UNK
     Dates: start: 19910101
  4. NEURONTIN [Suspect]
     Dosage: 1200 MG, 2X/DAY
  5. VICODIN [Suspect]

REACTIONS (2)
  - HYPERSENSITIVITY [None]
  - VISION BLURRED [None]
